FAERS Safety Report 11124787 (Version 1)
Quarter: 2015Q2

REPORT INFORMATION
  Report Type: Spontaneous
  Country: US (occurrence: None)
  Receive Date: 20150519
  Receipt Date: 20150519
  Transmission Date: 20150821
  Serious: Yes (Other)
  Sender: FDA-Public Use
  Company Number: None

PATIENT
  Age: 80 Year
  Sex: Male

DRUGS (1)
  1. NORTHERA [Suspect]
     Active Substance: DROXIDOPA
     Indication: PARKINSON^S DISEASE
     Dosage: 2  TID ORAL?3 TO 4 MONTH ANOTHER RX
     Route: 048

REACTIONS (5)
  - Dizziness [None]
  - Back pain [None]
  - Speech disorder [None]
  - Dysarthria [None]
  - Headache [None]

NARRATIVE: CASE EVENT DATE: 20150518
